FAERS Safety Report 5659346-1 (Version None)
Quarter: 2008Q1

REPORT INFORMATION
  Report Type: 
  Country: None (occurrence: None)
  Receive Date: 20080311
  Receipt Date: 20080229
  Transmission Date: 20080703
  Serious: Yes (Death)
  Sender: FDA-Public Use
  Company Number: US-JNJFOC-20080102764

PATIENT
  Sex: Female

DRUGS (5)
  1. DURAGESIC-100 [Suspect]
     Indication: CANCER PAIN
     Route: 062
  2. LEVOTHYROXINE SODIUM [Concomitant]
     Indication: THYROID DISORDER
     Route: 048
  3. ENALAPRIL MALEATE [Concomitant]
     Indication: BLOOD PRESSURE
     Route: 048
  4. CALCITRIOL [Concomitant]
     Indication: MINERAL SUPPLEMENTATION
     Route: 048
  5. NORCO [Concomitant]
     Indication: PAIN
     Dosage: 10/3256 MG
     Route: 048

REACTIONS (1)
  - THYROID CANCER [None]
